FAERS Safety Report 8863978 (Version 1)
Quarter: 2012Q4

REPORT INFORMATION
  Report Type: 
  Country: US (occurrence: US)
  Receive Date: 20121024
  Receipt Date: 20121024
  Transmission Date: 20130627
  Serious: No
  Sender: FDA-Public Use
  Company Number: US-AMGEN-USASP2011065177

PATIENT
  Age: 52 Year
  Sex: Male
  Weight: 99.77 kg

DRUGS (3)
  1. ENBREL [Suspect]
     Indication: PRODUCT USED FOR UNKNOWN INDICATION
     Dosage: 50 mg, qwk
  2. CIPRO                              /00697201/ [Concomitant]
     Dosage: 500 mg, UNK
  3. FLAGYL /00012501/ [Concomitant]
     Dosage: 375 mg, UNK

REACTIONS (1)
  - Diverticulitis [Unknown]
